FAERS Safety Report 8932093 (Version 1)
Quarter: 2012Q4

REPORT INFORMATION
  Report Type: 
  Country: MX (occurrence: MX)
  Receive Date: 20121128
  Receipt Date: 20121128
  Transmission Date: 20130627
  Serious: Yes (Death)
  Sender: FDA-Public Use
  Company Number: MX-PFIZER INC-2012294855

PATIENT
  Age: 55 Year
  Sex: Female

DRUGS (2)
  1. CELEBREX [Suspect]
     Dosage: UNK
     Route: 048
  2. LYRICA [Suspect]
     Indication: NEUROPATHIC PAIN
     Dosage: 75 mg
     Route: 048

REACTIONS (1)
  - Renal impairment [Fatal]
